FAERS Safety Report 5526720-3 (Version None)
Quarter: 2007Q4

REPORT INFORMATION
  Report Type: 
  Country: None (occurrence: None)
  Receive Date: 20071127
  Receipt Date: 20071115
  Transmission Date: 20080405
  Serious: Yes (Other)
  Sender: FDA-Public Use
  Company Number: ES-ASTRAZENECA-2007AC02261

PATIENT
  Sex: Female

DRUGS (7)
  1. PULMICORT [Suspect]
     Indication: ASTHMA
     Dosage: LONG TERM USE, SWITCHED TO AER_HFA FORMULATION
     Route: 055
     Dates: end: 20071005
  2. PULMICORT [Suspect]
     Route: 055
     Dates: start: 20071005, end: 20071008
  3. PULMICORT [Suspect]
     Dosage: SWITCHED BACK TO AER FORMULATION
     Route: 055
  4. ZASTEN [Concomitant]
  5. ATARAX [Concomitant]
  6. SEREVENT [Concomitant]
  7. TRANKIMAZIN [Concomitant]

REACTIONS (7)
  - CHEILITIS [None]
  - EYE DISORDER [None]
  - INFLAMMATION [None]
  - PRURITUS [None]
  - RASH [None]
  - URTICARIA [None]
  - WEIGHT DECREASED [None]
